FAERS Safety Report 6800889-2 (Version None)
Quarter: 2010Q2

REPORT INFORMATION
  Report Type: 
  Country: None (occurrence: None)
  Receive Date: 20100629
  Receipt Date: 20100614
  Transmission Date: 20101027
  Serious: Yes (Hospitalization)
  Sender: FDA-Public Use
  Company Number: PHHY2010MX38847

PATIENT
  Sex: Male

DRUGS (3)
  1. EXFORGE [Suspect]
     Indication: HYPERTENSION
     Dosage: 2 TABLETS (160/10 MG ) PER DAY
     Dates: start: 20100414, end: 20100612
  2. LYRICA [Concomitant]
  3. MOVILOX [Concomitant]

REACTIONS (4)
  - FLUID RETENTION [None]
  - JOINT SWELLING [None]
  - OEDEMA PERIPHERAL [None]
  - TENDON OPERATION [None]
